FAERS Safety Report 9899424 (Version 1)
Quarter: 2014Q1

REPORT INFORMATION
  Report Type: Spontaneous
  Country: JP (occurrence: JP)
  Receive Date: 20140214
  Receipt Date: 20140214
  Transmission Date: 20141002
  Serious: Yes (Hospitalization)
  Sender: FDA-Public Use
  Company Number: JP-MERCK-1402JPN004496

PATIENT
  Age: 32 Year
  Sex: Male
  Weight: 78 kg

DRUGS (3)
  1. ROCURONIUM BROMIDE [Suspect]
     Dosage: 90 MG, UNK
     Route: 042
  2. MIDAZOLAM [Suspect]
     Dosage: 5 MG, UNK
     Route: 042
  3. THIOPENTAL SODIUM [Suspect]
     Dosage: 100 MG, UNK
     Route: 042

REACTIONS (1)
  - Circulatory collapse [Recovered/Resolved]
